FAERS Safety Report 21381001 (Version 1)
Quarter: 2022Q3

REPORT INFORMATION
  Report Type: Spontaneous
  Country: AR (occurrence: AR)
  Receive Date: 20220927
  Receipt Date: 20220927
  Transmission Date: 20221026
  Serious: Yes (Hospitalization)
  Sender: FDA-Public Use
  Company Number: AR-PFIZER INC-PV202200062859

PATIENT
  Age: 55 Year
  Sex: Male

DRUGS (1)
  1. SUTENT [Suspect]
     Active Substance: SUNITINIB MALATE
     Indication: Metastatic renal cell carcinoma
     Dosage: 21 DAYS, 2/1 REST SCHEME
     Dates: start: 20200601

REACTIONS (8)
  - General physical health deterioration [Not Recovered/Not Resolved]
  - Hepatic lesion [Not Recovered/Not Resolved]
  - Musculoskeletal chest pain [Not Recovered/Not Resolved]
  - Nervousness [Not Recovered/Not Resolved]
  - Arthropathy [Not Recovered/Not Resolved]
  - Skin discolouration [Not Recovered/Not Resolved]
  - Thermal burn [Not Recovered/Not Resolved]
  - Off label use [Not Recovered/Not Resolved]

NARRATIVE: CASE EVENT DATE: 20220918
